FAERS Safety Report 8231843-4 (Version None)
Quarter: 2012Q1

REPORT INFORMATION
  Report Type: 
  Country: None (occurrence: None)
  Receive Date: 20120323
  Receipt Date: 20120316
  Transmission Date: 20120608
  Serious: Yes (Hospitalization)
  Sender: FDA-Public Use
  Company Number: GB-ROCHE-1051663

PATIENT
  Age: 88 Year
  Sex: Female
  Weight: 65 kg

DRUGS (1)
  1. ALTEPLASE [Suspect]
     Indication: ISCHAEMIC STROKE
     Route: 042
     Dates: start: 20120307

REACTIONS (1)
  - ANGIOEDEMA [None]
